FAERS Safety Report 7984651-3 (Version None)
Quarter: 2011Q4

REPORT INFORMATION
  Report Type: 
  Country: None (occurrence: None)
  Receive Date: 20111216
  Receipt Date: 20111209
  Transmission Date: 20120403
  Serious: Yes (Hospitalization)
  Sender: FDA-Public Use
  Company Number: IE-JNJFOC-20111201988

PATIENT
  Sex: Female

DRUGS (9)
  1. LIPITOR [Concomitant]
  2. PANTOPRAZOLE [Concomitant]
  3. METHOTREXATE [Concomitant]
  4. DIAMICRON [Concomitant]
  5. SIMPONI [Suspect]
     Indication: RHEUMATOID ARTHRITIS
     Route: 058
     Dates: start: 20111005
  6. FOLIC ACID [Concomitant]
  7. QUININE SULFATE [Concomitant]
  8. GLUCOPHAGE [Concomitant]
  9. PERINDOPRIL ERBUMINE [Concomitant]

REACTIONS (1)
  - HOSPITALISATION [None]
